FAERS Safety Report 7360213-6 (Version None)
Quarter: 2011Q1

REPORT INFORMATION
  Report Type: 
  Country: None (occurrence: None)
  Receive Date: 20110307
  Receipt Date: 20110221
  Transmission Date: 20110831
  Serious: Yes (Hospitalization)
  Sender: FDA-Public Use
  Company Number: 1000019045

PATIENT
  Age: 24 Year
  Sex: Male

DRUGS (6)
  1. DICLOFENAC SODIUM [Concomitant]
  2. CITALOPRAM HYDROBROMIDE [Suspect]
     Indication: ANXIETY
     Dosage: 20 MG (20 MG, 1 IN 1 D), ORAL
     Route: 048
     Dates: start: 20110128, end: 20110208
  3. SERETIDE (FLUTICASONE PROIONATE MICRONIZED, SALMETEROL XINAFOATE, MICR [Concomitant]
  4. FLUOXETINE [Suspect]
     Indication: ANXIETY
     Dosage: 20 MG (20 MG, 1 IN 1 D), ORAL
     Route: 048
     Dates: start: 20101231, end: 20110127
  5. AMOXICILLIN [Concomitant]
  6. OMEPRAZOLE [Concomitant]

REACTIONS (4)
  - VOMITING [None]
  - MUSCLE RIGIDITY [None]
  - SEROTONIN SYNDROME [None]
  - CHILLS [None]
